FAERS Safety Report 16438986 (Version 1)
Quarter: 2019Q2

REPORT INFORMATION
  Report Type: Other
  Country: US (occurrence: FR)
  Receive Date: 20190617
  Receipt Date: 20190617
  Transmission Date: 20190711
  Serious: Yes (Congenital Anomaly, Other)
  Sender: FDA-Public Use
  Company Number: US-MACLEODS PHARMACEUTICALS US LTD-MAC2019021639

PATIENT

DRUGS (3)
  1. LAMIVUDINE. [Suspect]
     Active Substance: LAMIVUDINE
     Indication: HIV INFECTION
     Dosage: 1 COURSE DURING SECOND TRIMESTER
     Route: 064
     Dates: start: 20060202
  2. ZIDOVUDINE. [Suspect]
     Active Substance: ZIDOVUDINE
     Indication: HIV INFECTION
     Dosage: 1 COURSE DURING SECOND TRIMESTER
     Route: 064
     Dates: start: 20060202
  3. VIRACEPT [Suspect]
     Active Substance: NELFINAVIR MESYLATE
     Indication: HIV INFECTION
     Dosage: 1 COURSE DURING SECOND TRIMESTER
     Route: 064
     Dates: start: 20060202

REACTIONS (3)
  - Foetal exposure during pregnancy [Unknown]
  - Haemangioma [Unknown]
  - Congenital teratoma [Unknown]
